FAERS Safety Report 4334031-7 (Version None)
Quarter: 2004Q1

REPORT INFORMATION
  Report Type: 
  Country: None (occurrence: None)
  Receive Date: 20040329
  Receipt Date: 20040129
  Transmission Date: 20041129
  Serious: No
  Sender: FDA-Public Use
  Company Number: 04P-163-0247105-00

PATIENT
  Age: 65 Year
  Sex: Female
  Weight: 45.3597 kg

DRUGS (6)
  1. HUMIRA [Suspect]
     Indication: RHEUMATOID ARTHRITIS
     Dosage: 40 MG, 1 IN 2 WK, SUBCUTANEOUS
     Route: 058
     Dates: start: 20030601
  2. PREDNISONE [Concomitant]
  3. NAPROXEN [Concomitant]
  4. RISENDRONATE SODIUM [Concomitant]
  5. LEFLUNOMIDE [Concomitant]
  6. ACCUNIL [Concomitant]

REACTIONS (3)
  - ARTHRALGIA [None]
  - INJECTION SITE BURNING [None]
  - IRON DEFICIENCY ANAEMIA [None]
